FAERS Safety Report 5601182-6 (Version None)
Quarter: 2008Q1

REPORT INFORMATION
  Report Type: 
  Country: None (occurrence: None)
  Receive Date: 20080122
  Receipt Date: 20080122
  Transmission Date: 20080703
  Serious: No
  Sender: FDA-Public Use
  Company Number: None

PATIENT
  Age: 84 Year
  Sex: Female
  Weight: 47.6277 kg

DRUGS (6)
  1. SEROQUEL [Suspect]
     Indication: AGITATION
     Dosage: 12.5MG QHS PO
     Route: 048
     Dates: start: 20070403, end: 20080121
  2. SEROQUEL [Suspect]
     Indication: ANGER
     Dosage: 12.5MG QHS PO
     Route: 048
     Dates: start: 20070403, end: 20080121
  3. SEROQUEL [Suspect]
     Indication: DEMENTIA ALZHEIMER'S TYPE
     Dosage: 12.5MG QHS PO
     Route: 048
     Dates: start: 20070403, end: 20080121
  4. SEROQUEL [Suspect]
     Indication: AGITATION
     Dosage: 25MG DAILY PRN PO
     Route: 048
     Dates: start: 20070403, end: 20070823
  5. SEROQUEL [Suspect]
     Indication: ANGER
     Dosage: 25MG DAILY PRN PO
     Route: 048
     Dates: start: 20070403, end: 20070823
  6. SEROQUEL [Suspect]
     Indication: DEMENTIA ALZHEIMER'S TYPE
     Dosage: 25MG DAILY PRN PO
     Route: 048
     Dates: start: 20070403, end: 20070823

REACTIONS (4)
  - BRUXISM [None]
  - EXTRAPYRAMIDAL DISORDER [None]
  - TARDIVE DYSKINESIA [None]
  - TONGUE DISORDER [None]
